FAERS Safety Report 25690627 (Version 1)
Quarter: 2025Q3

REPORT INFORMATION
  Report Type: Spontaneous
  Country: CN (occurrence: CN)
  Receive Date: 20250818
  Receipt Date: 20250818
  Transmission Date: 20251021
  Serious: Yes (Hospitalization, Other)
  Sender: BAYER HEALTHCARE PHARMACEUTICALS INC.
  Company Number: CN-BAYER-2025A109117

PATIENT
  Age: 70 Year
  Sex: Male
  Weight: 74 kg

DRUGS (2)
  1. ULTRAVIST [Suspect]
     Active Substance: IOPROMIDE
     Indication: Angiocardiogram
     Route: 040
     Dates: start: 20250814, end: 20250814
  2. ULTRAVIST [Suspect]
     Active Substance: IOPROMIDE
     Indication: Intervertebral disc protrusion

REACTIONS (8)
  - Anaphylactic shock [Recovering/Resolving]
  - Heart rate irregular [Recovering/Resolving]
  - Blood pressure immeasurable [Recovered/Resolved]
  - Electrocardiogram ST segment depression [None]
  - Pruritus [None]
  - Dizziness [None]
  - Asthenia [None]
  - Electrocardiogram abnormal [None]

NARRATIVE: CASE EVENT DATE: 20250814
